FAERS Safety Report 10818058 (Version 2)
Quarter: 2015Q1

REPORT INFORMATION
  Report Type: Report from Study
  Country: US (occurrence: US)
  Receive Date: 20150218
  Receipt Date: 20150309
  Transmission Date: 20150721
  Serious: Yes (Hospitalization)
  Sender: FDA-Public Use
  Company Number: US-009507513-1502USA007561

PATIENT
  Age: 85 Year
  Sex: Male
  Weight: 78.74 kg

DRUGS (7)
  1. PEMBROLIZUMAB. [Suspect]
     Active Substance: PEMBROLIZUMAB
     Indication: NON-SMALL CELL LUNG CANCER
     Dosage: 10 MG/KG, Q3W
     Route: 042
     Dates: start: 20141230, end: 20141230
  2. LORAZEPAM. [Concomitant]
     Active Substance: LORAZEPAM
     Indication: INSOMNIA
     Dosage: TOTAL DAILY DOSE: 0.5 MG, PRN
     Route: 048
     Dates: start: 20141211
  3. PEMBROLIZUMAB. [Suspect]
     Active Substance: PEMBROLIZUMAB
     Dosage: 10 MG/KG, Q3W
     Route: 042
     Dates: start: 20150120, end: 20150120
  4. LIDODERM [Concomitant]
     Active Substance: LIDOCAINE
     Indication: MUSCULOSKELETAL CHEST PAIN
     Dosage: TOTAL DAILY DOSE:1 PATCH; FREQUENCY OTHER
     Route: 062
     Dates: start: 20150120
  5. HYDROCODONE [Concomitant]
     Active Substance: HYDROCODONE
     Indication: BACK PAIN
     Dosage: TOTAL DAILY DOSE: 10 MG, PRN
     Route: 048
     Dates: start: 20141216
  6. HYDROCODONE [Concomitant]
     Active Substance: HYDROCODONE
     Indication: ARTHRALGIA
  7. LORAZEPAM. [Concomitant]
     Active Substance: LORAZEPAM
     Indication: ANXIETY

REACTIONS (1)
  - Pneumonitis [Recovering/Resolving]

NARRATIVE: CASE EVENT DATE: 20150212
